FAERS Safety Report 23517325 (Version 1)
Quarter: 2024Q1

REPORT INFORMATION
  Report Type: Spontaneous
  Country: US (occurrence: None)
  Receive Date: 20240212
  Receipt Date: 20240212
  Transmission Date: 20240410
  Serious: Yes (Life-Threatening, Hospitalization, Disabling, Other)
  Sender: FDA-Public Use
  Company Number: None

PATIENT
  Age: 40 Year
  Sex: Male
  Weight: 58.5 kg

DRUGS (6)
  1. MENOPUR [Suspect]
     Active Substance: FOLLITROPIN\LUTEINIZING HORMONE
     Indication: Infertility
  2. GONAL-F [Suspect]
     Active Substance: FOLLITROPIN
  3. FOLLISTIM [Suspect]
     Active Substance: FOLLITROPIN
  4. CETROTIDE [Suspect]
     Active Substance: CETRORELIX ACETATE
  5. OVIDREL [Suspect]
     Active Substance: CHORIOGONADOTROPIN ALFA
  6. GONADOTROPIN, CHORIONIC [Suspect]
     Active Substance: CHORIOGONADOTROPIN ALFA

REACTIONS (1)
  - Breast cancer stage II [None]

NARRATIVE: CASE EVENT DATE: 20240205
